FAERS Safety Report 6216991-2 (Version None)
Quarter: 2009Q2

REPORT INFORMATION
  Report Type: 
  Country: None (occurrence: None)
  Receive Date: 20090604
  Receipt Date: 20090529
  Transmission Date: 20091009
  Serious: Yes (Death)
  Sender: FDA-Public Use
  Company Number: GXKR2009DE06309

PATIENT
  Age: 94 Year
  Sex: Female
  Weight: 49.5 kg

DRUGS (3)
  1. AMOCLAV (AMOXICILLIN, CLAVULANATE) FILM-COATED [Suspect]
     Indication: SKIN LESION
     Dosage: 1 DF, BID, ORAL
     Route: 048
     Dates: end: 20090330
  2. OXAZEPAM [Concomitant]
  3. RAMIPRIL [Concomitant]

REACTIONS (1)
  - TOXIC EPIDERMAL NECROLYSIS [None]
